FAERS Safety Report 7917266-3 (Version None)
Quarter: 2011Q4

REPORT INFORMATION
  Report Type: 
  Country: None (occurrence: None)
  Receive Date: 20111116
  Receipt Date: 20111102
  Transmission Date: 20120403
  Serious: Yes (Other)
  Sender: FDA-Public Use
  Company Number: PHHY2011NL89880

PATIENT
  Sex: Female
  Weight: 80 kg

DRUGS (2)
  1. VITAMIN D2 [Concomitant]
     Dosage: 2 DF, QW
     Route: 048
  2. GLEEVEC [Suspect]
     Indication: CHRONIC MYELOID LEUKAEMIA
     Dosage: 600 MG, UNK
     Route: 048
     Dates: start: 20030101

REACTIONS (4)
  - FOOT FRACTURE [None]
  - VITAMIN D DECREASED [None]
  - MYALGIA [None]
  - PATHOLOGICAL FRACTURE [None]
